FAERS Safety Report 7738947-0 (Version None)
Quarter: 2011Q3

REPORT INFORMATION
  Report Type: 
  Country: None (occurrence: None)
  Receive Date: 20110909
  Receipt Date: 20110906
  Transmission Date: 20111222
  Serious: Yes (Hospitalization, Other)
  Sender: FDA-Public Use
  Company Number: US-BIOGENIDEC-2011BI025529

PATIENT
  Age: 52 Year
  Sex: Female
  Weight: 82 kg

DRUGS (5)
  1. ANTIVERT [Concomitant]
     Indication: DIZZINESS
  2. LYRICA [Concomitant]
     Indication: NEURALGIA
  3. TYSABRI [Suspect]
     Indication: MULTIPLE SCLEROSIS
     Route: 042
     Dates: start: 20080408, end: 20110606
  4. MIDRIN [Concomitant]
     Indication: HEADACHE
  5. AMANTADINE HCL [Concomitant]
     Indication: FATIGUE

REACTIONS (5)
  - RELAPSING-REMITTING MULTIPLE SCLEROSIS [None]
  - URINARY TRACT INFECTION [None]
  - IMMUNE RECONSTITUTION SYNDROME [None]
  - MIGRAINE [None]
  - PROGRESSIVE MULTIFOCAL LEUKOENCEPHALOPATHY [None]
